FAERS Safety Report 9781686 (Version 2)
Quarter: 2014Q1

REPORT INFORMATION
  Report Type: Spontaneous
  Country: US (occurrence: US)
  Receive Date: 20131224
  Receipt Date: 20140116
  Transmission Date: 20141002
  Serious: Yes (Hospitalization)
  Sender: FDA-Public Use
  Company Number: US-GILEAD-2013-0090558

PATIENT
  Sex: Female

DRUGS (4)
  1. LETAIRIS [Suspect]
     Indication: PRODUCT USED FOR UNKNOWN INDICATION
     Dosage: 10 MG, QD
     Route: 048
     Dates: start: 20120201
  2. PREDNISONE [Suspect]
  3. TYVASO [Concomitant]
  4. ADCIRCA [Concomitant]

REACTIONS (3)
  - Drug interaction [Unknown]
  - Confusional state [Recovered/Resolved]
  - Balance disorder [Recovered/Resolved]
